FAERS Safety Report 8288072-8 (Version None)
Quarter: 2012Q2

REPORT INFORMATION
  Report Type: 
  Country: None (occurrence: None)
  Receive Date: 20120416
  Receipt Date: 20120412
  Transmission Date: 20120825
  Serious: Yes (Death)
  Sender: FDA-Public Use
  Company Number: US-PURDUE-USA-2012-0081550

PATIENT
  Sex: Female
  Weight: 138.78 kg

DRUGS (7)
  1. OXYCODONE HCL [Suspect]
     Indication: POLYARTHRITIS
     Dosage: 10 MG, Q4H PRN
     Dates: start: 20110121, end: 20120120
  2. OXYCODONE HCL [Suspect]
     Indication: CRYOFIBRINOGENAEMIA
  3. LAMICTAL [Concomitant]
     Indication: DEPRESSION
     Dosage: UNK, NOCTE
     Dates: start: 20111223, end: 20120120
  4. FLUOXETINE [Concomitant]
     Indication: DEPRESSION
     Dosage: 40 MG, DAILY
     Dates: start: 20111024, end: 20120120
  5. OXYCONTIN [Suspect]
     Indication: POLYARTHRITIS
     Dosage: 60 MG, Q12H
     Route: 048
     Dates: start: 20110211, end: 20120120
  6. OXYCONTIN [Suspect]
     Indication: CRYOFIBRINOGENAEMIA
  7. NEURONTIN [Concomitant]
     Indication: PAIN
     Dosage: 300 MG, BID
     Dates: start: 20100402, end: 20120120

REACTIONS (1)
  - OVERDOSE [None]
